FAERS Safety Report 8157821-1 (Version None)
Quarter: 2012Q1

REPORT INFORMATION
  Report Type: 
  Country: None (occurrence: None)
  Receive Date: 20120222
  Receipt Date: 20120213
  Transmission Date: 20120608
  Serious: Yes (Other)
  Sender: FDA-Public Use
  Company Number: US-ASTRAZENECA-2012SE04231

PATIENT
  Age: 69 Year
  Sex: Female
  Weight: 70.3 kg

DRUGS (7)
  1. SEROQUEL [Suspect]
     Indication: BIPOLAR DISORDER
     Route: 048
     Dates: start: 20100101
  2. CITALOPRAM HYDROBROMIDE [Concomitant]
     Indication: BACK PAIN
  3. SYMBICORT [Suspect]
     Indication: CHRONIC OBSTRUCTIVE PULMONARY DISEASE
     Dosage: 160/4.5 MCG, TWO TIMES A DAY
     Route: 055
     Dates: start: 20100101
  4. NIFEDIPINE [Concomitant]
     Indication: CEREBROVASCULAR ACCIDENT
  5. LOVASTATIN [Concomitant]
     Indication: BLOOD CHOLESTEROL ABNORMAL
  6. VENTOLIN [Concomitant]
     Indication: CHRONIC OBSTRUCTIVE PULMONARY DISEASE
     Route: 055
  7. TRAMADOL HCL [Concomitant]
     Indication: BACK PAIN

REACTIONS (2)
  - PNEUMONIA [None]
  - OFF LABEL USE [None]
